FAERS Safety Report 7812659-7 (Version None)
Quarter: 2011Q4

REPORT INFORMATION
  Report Type: 
  Country: None (occurrence: None)
  Receive Date: 20111013
  Receipt Date: 20111006
  Transmission Date: 20120403
  Serious: Yes (Hospitalization)
  Sender: FDA-Public Use
  Company Number: KR-BRISTOL-MYERS SQUIBB COMPANY-16130320

PATIENT
  Age: 34 Year
  Sex: Female

DRUGS (5)
  1. PACLITAXEL [Suspect]
     Indication: NEOPLASM
     Route: 042
     Dates: start: 20110920, end: 20110920
  2. BMS754807 [Suspect]
     Indication: NEOPLASM
     Route: 048
     Dates: start: 20110921, end: 20111004
  3. CARBOPLATIN [Suspect]
     Indication: NEOPLASM
     Route: 042
     Dates: start: 20110920, end: 20110920
  4. RESPLEN [Concomitant]
     Dosage: SYRUP
     Dates: start: 20110927
  5. METFORMIN HCL [Concomitant]
     Dates: start: 20110927, end: 20111004

REACTIONS (1)
  - MUSCULAR WEAKNESS [None]
